FAERS Safety Report 8415046-6 (Version None)
Quarter: 2012Q2

REPORT INFORMATION
  Report Type: 
  Country: None (occurrence: None)
  Receive Date: 20120530
  Receipt Date: 20120517
  Transmission Date: 20120825
  Serious: Yes (Other)
  Sender: FDA-Public Use
  Company Number: 2012SP020784

PATIENT
  Age: 51 Year
  Sex: Male
  Weight: 90.6 kg

DRUGS (15)
  1. GS-9451 [Suspect]
     Indication: HEPATITIS C
     Dosage: 2 DF;QD;PO
     Route: 047
     Dates: start: 20111229, end: 20120118
  2. GS-9451 [Suspect]
     Indication: HEPATITIS C
     Dosage: 2 DF;QD;PO
     Route: 047
     Dates: start: 20120119, end: 20120313
  3. ACETAMINOPHEN [Concomitant]
  4. RIBAVIRIN [Suspect]
     Indication: HEPATITIS C
     Dosage: 600 MG;BID;PO
     Route: 048
     Dates: start: 20110119, end: 20120313
  5. RIBAVIRIN [Suspect]
     Indication: HEPATITIS C
     Dosage: 600 MG;BID;PO
     Route: 048
     Dates: start: 20111229, end: 20120118
  6. PEGINTERFERON ALFA-2A [Suspect]
     Indication: HEPATITIS C
     Dosage: 180 MCG;QW;SC
     Route: 058
     Dates: start: 20120119, end: 20120309
  7. METOPROLOL [Concomitant]
  8. CELEXA [Concomitant]
  9. ASPIRIN [Concomitant]
  10. CODEINE SULFATE [Concomitant]
  11. GS-5885 [Suspect]
     Indication: HEPATITIS C
     Dosage: 3 DF;QD;PO
     Route: 048
     Dates: start: 20120119, end: 20120313
  12. GS-5885 [Suspect]
     Indication: HEPATITIS C
     Dosage: 3 DF;QD;PO
     Route: 048
     Dates: start: 20111229, end: 20120118
  13. SULINDAC [Concomitant]
  14. ZITHROMAX [Concomitant]
  15. RANITIDINE [Concomitant]

REACTIONS (20)
  - EXCORIATION [None]
  - OTORRHOEA [None]
  - SCAB [None]
  - PERONEAL NERVE PALSY [None]
  - MYASTHENIA GRAVIS [None]
  - STAPHYLOCOCCUS TEST POSITIVE [None]
  - PERIPHERAL SENSORIMOTOR NEUROPATHY [None]
  - NEPHROLITHIASIS [None]
  - CELLULITIS [None]
  - RASH ERYTHEMATOUS [None]
  - EAR PAIN [None]
  - POLYNEUROPATHY [None]
  - DRUG HYPERSENSITIVITY [None]
  - FALL [None]
  - DEMYELINATION [None]
  - AURICULAR SWELLING [None]
  - EYELID PTOSIS [None]
  - MOTOR DYSFUNCTION [None]
  - ORAL MUCOSAL EXFOLIATION [None]
  - AXONAL NEUROPATHY [None]
